FAERS Safety Report 4522576-6 (Version None)
Quarter: 2004Q4

REPORT INFORMATION
  Report Type: 
  Country: None (occurrence: None)
  Receive Date: 20041209
  Receipt Date: 20030821
  Transmission Date: 20050328
  Serious: Yes (Other)
  Sender: FDA-Public Use
  Company Number: PHBS2003US08927

PATIENT
  Age: 21 Year
  Sex: Female

DRUGS (5)
  1. BASILIXIMAB [Suspect]
     Indication: RENAL TRANSPLANT
     Dosage: 12 MG/M2, ONCE/SINGLE
  2. TACROLIMUS [Concomitant]
     Indication: RENAL TRANSPLANT
     Dosage: .15 MG/KG, BID
     Route: 048
  3. METHYLPREDNISOLONE [Concomitant]
     Indication: RENAL TRANSPLANT
     Route: 042
  4. PREDNISOLONE [Concomitant]
     Dosage: .5 MG/KG, BID
     Route: 048
  5. FUROSEMIDE [Concomitant]

REACTIONS (6)
  - CYANOSIS CENTRAL [None]
  - LETHARGY [None]
  - LUNG INFILTRATION [None]
  - NON-CARDIOGENIC PULMONARY OEDEMA [None]
  - RESPIRATORY DISTRESS [None]
  - VENTRICULAR HYPERTROPHY [None]
